FAERS Safety Report 8820874 (Version 1)
Quarter: 2012Q4

REPORT INFORMATION
  Report Type: 
  Country: US (occurrence: US)
  Receive Date: 20121002
  Receipt Date: 20121002
  Transmission Date: 20130627
  Serious: Yes (Hospitalization)
  Sender: FDA-Public Use
  Company Number: US-B.I. PHARMACEUTICALS,INC./RIDGEFIELD-2012-BP-23348BP

PATIENT
  Sex: Female
  Weight: 59 kg

DRUGS (5)
  1. SPIRIVA [Suspect]
     Indication: CHRONIC OBSTRUCTIVE PULMONARY DISEASE
     Dosage: 18 mcg
     Route: 055
     Dates: start: 1997
  2. SPIRIVA [Suspect]
     Indication: ASTHMA
  3. LOSARTAN [Concomitant]
     Indication: HYPERTENSION
     Route: 048
     Dates: start: 2009
  4. TAMOXIFEN [Concomitant]
     Indication: PROPHYLAXIS
     Dosage: 20 mg
     Route: 048
     Dates: start: 2009
  5. PREDNISONE [Concomitant]
     Indication: ASTHMA
     Dates: start: 1997

REACTIONS (1)
  - Dyspnoea [Recovered/Resolved]
